FAERS Safety Report 5261636-1 (Version None)
Quarter: 2007Q1

REPORT INFORMATION
  Report Type: 
  Country: None (occurrence: None)
  Receive Date: 20061218
  Receipt Date: 20060804
  Transmission Date: 20070707
  Serious: No
  Sender: FDA-Public Use
  Company Number: US200608001251

PATIENT
  Age: 70 Year
  Sex: Male

DRUGS (3)
  1. CIALIS [Suspect]
     Dosage: 20 MG, AS NEEDED
  2. METFORMIN HCL [Concomitant]
  3. ALTACE [Concomitant]

REACTIONS (1)
  - EJACULATION FAILURE [None]
